FAERS Safety Report 11376066 (Version 1)
Quarter: 2020Q3

REPORT INFORMATION
  Report Type: Spontaneous
  Country: GB (occurrence: GB)
  Receive Date: 20150813
  Receipt Date: 20150813
  Transmission Date: 20201104
  Serious: Yes (Death)
  Sender: FDA-Public Use
  Company Number: GB-ELI_LILLY_AND_COMPANY-GB201508003572

PATIENT

DRUGS (3)
  1. CEDIRANIB. [Suspect]
     Active Substance: CEDIRANIB
     Indication: BILE DUCT CANCER
     Dosage: 20 MG, CYCLICAL
     Route: 048
  2. GEMCITABINE HYDROCHLORIDE. [Suspect]
     Active Substance: GEMCITABINE HYDROCHLORIDE
     Indication: BILE DUCT CANCER
     Dosage: 1000 MG/M2, CYCLICAL
     Route: 065
  3. CISPLATINE [Suspect]
     Active Substance: CISPLATIN
     Indication: BILE DUCT CANCER
     Dosage: 25 MG/M2, CYCLICAL
     Route: 065

REACTIONS (1)
  - Death [Fatal]
